FAERS Safety Report 5318194-2 (Version None)
Quarter: 2007Q2

REPORT INFORMATION
  Report Type: 
  Country: None (occurrence: None)
  Receive Date: 20070507
  Receipt Date: 20070424
  Transmission Date: 20071010
  Serious: Yes (Hospitalization)
  Sender: FDA-Public Use
  Company Number: IN-ELI_LILLY_AND_COMPANY-IN200704005797

PATIENT
  Age: 42 Year
  Sex: Male
  Weight: 32 kg

DRUGS (14)
  1. PEMETREXED [Suspect]
     Indication: SMALL CELL LUNG CANCER STAGE UNSPECIFIED
     Dosage: 595 MG, ONCE EVERY 21 DAYS
     Route: 042
     Dates: start: 20070421
  2. ATIVAN [Concomitant]
     Indication: PROPHYLAXIS OF NAUSEA AND VOMITING
     Dosage: UNK, UNK
     Route: 048
     Dates: start: 20070422, end: 20070423
  3. GRANISETRON  HCL [Concomitant]
     Indication: PROPHYLAXIS OF NAUSEA AND VOMITING
     Dosage: UNK, UNK
     Route: 048
     Dates: start: 20070422, end: 20070423
  4. PERINORM [Concomitant]
     Indication: PROPHYLAXIS OF NAUSEA AND VOMITING
     Dosage: UNK, UNK
     Route: 048
     Dates: start: 20070422, end: 20070423
  5. RANTAC [Concomitant]
     Indication: PROPHYLAXIS OF NAUSEA AND VOMITING
     Dosage: UNK, UNK
     Route: 048
     Dates: start: 20070422, end: 20070423
  6. TANTUM [Concomitant]
     Indication: PROPHYLAXIS OF NAUSEA AND VOMITING
     Dosage: UNK, UNK
     Route: 048
     Dates: start: 20070422
  7. PANTOPRAZOLE [Concomitant]
     Indication: PROPHYLAXIS AGAINST GASTROINTESTINAL ULCER
     Dates: start: 20070424
  8. ONDANSETRON [Concomitant]
     Indication: ANTIEMETIC SUPPORTIVE CARE
     Dosage: UNK, UNK
     Dates: start: 20070424
  9. CANDID B [Concomitant]
     Indication: DENTAL DISORDER PROPHYLAXIS
     Dosage: UNK, UNK
     Route: 048
     Dates: start: 20070424
  10. ALLOPURINOL [Concomitant]
     Indication: PROPHYLAXIS
     Dosage: UNK, UNK
     Route: 048
     Dates: start: 20070424
  11. CARBOPLATIN [Suspect]
     Indication: SMALL CELL LUNG CANCER STAGE UNSPECIFIED
     Dosage: 488 MG, ONCE EVERY 21 DAYS
     Route: 042
     Dates: start: 20070421
  12. FOLIC ACID [Concomitant]
     Dosage: 1000 MG, EVERY 21 DAYS
     Dates: start: 20070417
  13. VITAMIN B-12 [Concomitant]
     Dosage: 1000 MG, EVERY 21 DAYS
     Route: 030
     Dates: start: 20070419
  14. DEXAMETHASONE 0.5MG TAB [Concomitant]
     Dosage: 4 MG, 2/D
     Route: 048
     Dates: start: 20070420

REACTIONS (1)
  - LUNG CONSOLIDATION [None]
